FAERS Safety Report 4337009-2 (Version None)
Quarter: 2004Q1

REPORT INFORMATION
  Report Type: 
  Country: None (occurrence: None)
  Receive Date: 20040329
  Receipt Date: 20040116
  Transmission Date: 20041129
  Serious: No
  Sender: FDA-Public Use
  Company Number: USA040156907

PATIENT
  Age: 10 Year
  Sex: Male
  Weight: 31 kg

DRUGS (4)
  1. STRATTERA [Suspect]
     Indication: ATTENTION DEFICIT/HYPERACTIVITY DISORDER
     Dosage: 60 MG/DAY
     Dates: start: 20031201
  2. ALBUTEROL [Concomitant]
  3. ZYRTEC [Concomitant]
  4. ADDERALL 10 [Concomitant]

REACTIONS (4)
  - FAECAL INCONTINENCE [None]
  - FATIGUE [None]
  - PRESCRIBED OVERDOSE [None]
  - SOMNOLENCE [None]
